APPROVED DRUG PRODUCT: KALETRA
Active Ingredient: LOPINAVIR; RITONAVIR
Strength: 80MG/ML;20MG/ML
Dosage Form/Route: SOLUTION;ORAL
Application: N021251 | Product #001
Applicant: ABBVIE INC
Approved: Sep 15, 2000 | RLD: Yes | RS: Yes | Type: RX